FAERS Safety Report 6697680-7 (Version None)
Quarter: 2010Q2

REPORT INFORMATION
  Report Type: 
  Country: None (occurrence: None)
  Receive Date: 20100426
  Receipt Date: 20100414
  Transmission Date: 20101027
  Serious: Yes (Life-Threatening)
  Sender: FDA-Public Use
  Company Number: AU-MERCK-1004USA02088

PATIENT
  Age: 50 Year
  Sex: Male
  Weight: 81 kg

DRUGS (1)
  1. NOROXIN [Suspect]
     Route: 048
     Dates: start: 20100110, end: 20100110

REACTIONS (7)
  - DEPRESSION [None]
  - DYSPNOEA [None]
  - HEADACHE [None]
  - MYALGIA [None]
  - RETCHING [None]
  - TENDONITIS [None]
  - VISION BLURRED [None]
